FAERS Safety Report 8173060-2 (Version None)
Quarter: 2012Q1

REPORT INFORMATION
  Report Type: 
  Country: None (occurrence: None)
  Receive Date: 20120104
  Receipt Date: 20111206
  Transmission Date: 20120608
  Serious: No
  Sender: FDA-Public Use
  Company Number: 2011HGS-002564

PATIENT
  Age: 64 Year
  Sex: Female
  Weight: 83.4619 kg

DRUGS (12)
  1. ATENOLOL [Concomitant]
  2. CALCIUM (CALCIUM) (CALCIUM) [Concomitant]
  3. NACL 0.9% (SODIUM CHLORIDE) (SODIUM CHLORIDE) [Concomitant]
  4. PLAQUENIL (HYDROXYCHLOROQUINE SULFATE) (HYDROXYCHLOROQUINE SULFATE) [Concomitant]
  5. PROZAC [Concomitant]
  6. TRAZODONE (TRAZODONE) (TRAZODONE) [Concomitant]
  7. XANAX [Concomitant]
  8. GABAPENTIN [Concomitant]
  9. REQUIP (ROPINIROLE HYDROCHLORIDE) (ROPINIROLE HYDROCHLORIDE) [Concomitant]
  10. METHOTREXATE [Concomitant]
  11. TRAMADOL HCL [Concomitant]
  12. BENLYSTA [Suspect]
     Indication: SYSTEMIC LUPUS ERYTHEMATOSUS
     Dosage: 1 IN 14 D, INTRAVENOUS DRIP
     Route: 041
     Dates: start: 20110728, end: 20110728

REACTIONS (8)
  - SYSTEMIC LUPUS ERYTHEMATOSUS [None]
  - ERYTHEMA [None]
  - HYPERGLYCAEMIA [None]
  - FATIGUE [None]
  - MYALGIA [None]
  - MIGRAINE [None]
  - GAIT DISTURBANCE [None]
  - ARTHRALGIA [None]
